FAERS Safety Report 7267559-0 (Version None)
Quarter: 2011Q1

REPORT INFORMATION
  Report Type: 
  Country: None (occurrence: None)
  Receive Date: 20110201
  Receipt Date: 20110124
  Transmission Date: 20110831
  Serious: Yes (Life-Threatening, Hospitalization)
  Sender: FDA-Public Use
  Company Number: US-ELI_LILLY_AND_COMPANY-US201101006269

PATIENT
  Sex: Female

DRUGS (7)
  1. HUMALOG [Suspect]
  2. OXYGEN [Concomitant]
  3. GLIPIZIDE [Concomitant]
     Indication: DIABETES MELLITUS
     Dosage: 6 MG, UNKNOWN
  4. HUMALOG [Suspect]
     Dosage: UNK, AS NEEDED
     Dates: start: 20040101
  5. LANTUS [Concomitant]
     Indication: DIABETES MELLITUS
     Dosage: 45 U, EACH EVENING
  6. PREDNISONE [Concomitant]
     Indication: LUNG DISORDER
     Dosage: 5 MG, UNKNOWN
  7. HUMALOG [Suspect]
     Indication: DIABETES MELLITUS
     Dosage: 45 U, DAILY (1/D)
     Dates: start: 20040101

REACTIONS (8)
  - PNEUMONIA [None]
  - DIABETES MELLITUS INADEQUATE CONTROL [None]
  - APPARENT DEATH [None]
  - PLEURISY [None]
  - HOSPITALISATION [None]
  - DRUG DISPENSING ERROR [None]
  - COMA [None]
  - CARBON DIOXIDE INCREASED [None]
